FAERS Safety Report 5938815-0 (Version None)
Quarter: 2008Q4

REPORT INFORMATION
  Report Type: 
  Country: None (occurrence: None)
  Receive Date: 20081103
  Receipt Date: 20081002
  Transmission Date: 20090506
  Serious: No
  Sender: FDA-Public Use
  Company Number: US-BAYER-200835007NA

PATIENT
  Age: 82 Year
  Sex: Male

DRUGS (1)
  1. LEVITRA [Suspect]
     Indication: LOSS OF LIBIDO
     Dosage: UNIT DOSE: 10 MG
     Route: 048
     Dates: start: 20080901, end: 20080922

REACTIONS (1)
  - LIBIDO DISORDER [None]
